FAERS Safety Report 5227625-8 (Version None)
Quarter: 2007Q1

REPORT INFORMATION
  Report Type: 
  Country: None (occurrence: None)
  Receive Date: 20061201
  Receipt Date: 20061017
  Transmission Date: 20070707
  Serious: No
  Sender: FDA-Public Use
  Company Number: US200610003138

PATIENT
  Age: 60 Year
  Sex: Female

DRUGS (4)
  1. CYMBALTA [Suspect]
     Dosage: 60 MG, ORAL
     Route: 048
     Dates: start: 20060501, end: 20061001
  2. PREMPRO [Concomitant]
  3. METFORMIN HCL [Concomitant]
  4. DIAZIDE (GLICLAZIDE) [Concomitant]

REACTIONS (1)
  - PARAESTHESIA [None]
